FAERS Safety Report 7638811-1 (Version None)
Quarter: 2011Q3

REPORT INFORMATION
  Report Type: 
  Country: None (occurrence: None)
  Receive Date: 20110727
  Receipt Date: 20110725
  Transmission Date: 20111222
  Serious: Yes (Death)
  Sender: FDA-Public Use
  Company Number: CA-ROCHE-791856

PATIENT
  Age: 54 Year
  Sex: Male

DRUGS (5)
  1. OXYCODONE HCL [Suspect]
     Route: 048
  2. ZOPICLONE TABLETS [Suspect]
     Dosage: DRUG NAME: ZOPICLONE
     Route: 048
  3. DIPHENHYDRAMINE HCL [Suspect]
     Route: 048
  4. DIAZEPAM [Suspect]
     Route: 048
  5. PAROXETINE HCL [Suspect]
     Route: 048

REACTIONS (3)
  - COMPLETED SUICIDE [None]
  - SUBSTANCE ABUSE [None]
  - OVERDOSE [None]
